FAERS Safety Report 5475918-1 (Version None)
Quarter: 2007Q4

REPORT INFORMATION
  Report Type: 
  Country: None (occurrence: None)
  Receive Date: 20071003
  Receipt Date: 20070919
  Transmission Date: 20080405
  Serious: Yes (Other)
  Sender: FDA-Public Use
  Company Number: JP-ELI_LILLY_AND_COMPANY-JP200706000300

PATIENT
  Age: 63 Year
  Sex: Male

DRUGS (2)
  1. GEMZAR [Suspect]
     Indication: PANCREATIC CARCINOMA
     Dosage: 800 MG/M2, OTHER
     Route: 042
  2. TS 1 /JPN/ [Concomitant]
     Indication: PANCREATIC CARCINOMA
     Dosage: 80 MG, DAILY (1/D)
     Route: 048

REACTIONS (3)
  - ANAEMIA [None]
  - DUODENAL ULCER [None]
  - PYREXIA [None]
